FAERS Safety Report 5520894-6 (Version None)
Quarter: 2007Q4

REPORT INFORMATION
  Report Type: 
  Country: None (occurrence: None)
  Receive Date: 20071119
  Receipt Date: 20071116
  Transmission Date: 20080405
  Serious: Yes (Hospitalization)
  Sender: FDA-Public Use
  Company Number: B0495868A

PATIENT
  Age: 55 Year
  Sex: Female

DRUGS (1)
  1. CLENIL [Suspect]
     Indication: ASTHMA
     Dosage: 100MG PER DAY
     Route: 055
     Dates: start: 20070523, end: 20070523

REACTIONS (2)
  - HYPOTENSION [None]
  - MALAISE [None]
